FAERS Safety Report 7204094-X (Version None)
Quarter: 2010Q4

REPORT INFORMATION
  Report Type: 
  Country: None (occurrence: None)
  Receive Date: 20101230
  Receipt Date: 20101220
  Transmission Date: 20110411
  Serious: Yes (Hospitalization)
  Sender: FDA-Public Use
  Company Number: SG-ROCHE-602131

PATIENT
  Sex: Female

DRUGS (7)
  1. BEVACIZUMAB [Suspect]
     Indication: NON-SMALL CELL LUNG CANCER
     Dosage: 825 MG, Q3W
     Route: 042
     Dates: start: 20080320
  2. PLACEBO [Suspect]
     Indication: NON-SMALL CELL LUNG CANCER
     Dosage: 150 MG, QD
     Route: 048
     Dates: start: 20080611
  3. OXYCODONE HCL [Concomitant]
     Dosage: 5 MG, UNK
  4. AMITRIPTYLINE [Concomitant]
     Dosage: 10 MG, UNK
     Route: 048
  5. CODEINE [Concomitant]
     Dosage: 10 ML, UNK
     Route: 048
  6. HYDROXYZINE [Concomitant]
     Dosage: 10 MG, UNK
     Route: 048
  7. ZOMETA [Concomitant]
     Dosage: 4 MG, UNK

REACTIONS (1)
  - HYDROCEPHALUS [None]
